FAERS Safety Report 21246409 (Version 1)
Quarter: 2022Q3

REPORT INFORMATION
  Report Type: Spontaneous
  Country: FR (occurrence: FR)
  Receive Date: 20220824
  Receipt Date: 20220824
  Transmission Date: 20221027
  Serious: Yes (Other)
  Sender: FDA-Public Use
  Company Number: FR-AFSSAPS-AVMP20220287

PATIENT
  Age: 21 Year
  Sex: Male

DRUGS (2)
  1. BROMAZEPAM [Suspect]
     Active Substance: BROMAZEPAM
     Indication: Product used for unknown indication
     Dosage: LARGE QUANTITIES AT EACH INTAKE WITHOUT SPECIFYING THE EXACT FREQUENCY
     Route: 048
     Dates: start: 2022
  2. TRAMADOL [Suspect]
     Active Substance: TRAMADOL
     Indication: Product used for unknown indication
     Dosage: 3 TIMES A DAY
     Route: 048
     Dates: start: 2021

REACTIONS (2)
  - Drug dependence [Unknown]
  - Intentional product misuse [Unknown]

NARRATIVE: CASE EVENT DATE: 20210101
